FAERS Safety Report 9880302 (Version 1)
Quarter: 2014Q1

REPORT INFORMATION
  Report Type: Spontaneous
  Country: GB (occurrence: GB)
  Receive Date: 20140207
  Receipt Date: 20140207
  Transmission Date: 20141002
  Serious: Yes (Other)
  Sender: FDA-Public Use
  Company Number: GB-009507513-1402GBR000206

PATIENT
  Age: 29 Year
  Sex: Female
  Weight: 57.15 kg

DRUGS (1)
  1. NEXPLANON [Suspect]
     Indication: CONTRACEPTION
     Dosage: UNK
     Route: 058
     Dates: start: 20110510, end: 20140121

REACTIONS (2)
  - Abortion spontaneous [Unknown]
  - Pregnancy with implant contraceptive [Unknown]
